FAERS Safety Report 5376068-5 (Version None)
Quarter: 2007Q3

REPORT INFORMATION
  Report Type: 
  Country: None (occurrence: None)
  Receive Date: 20070702
  Receipt Date: 20070702
  Transmission Date: 20080115
  Serious: Yes (Other)
  Sender: FDA-Public Use
  Company Number: None

PATIENT
  Age: 34 Year
  Sex: Female

DRUGS (1)
  1. CARTICEL [Suspect]
     Indication: ARTHROPATHY
     Dosage: 1 NA ONCE IS
     Route: 035
     Dates: start: 19990624, end: 19990624

REACTIONS (6)
  - ARTHRALGIA [None]
  - CHONDROMALACIA [None]
  - GRAFT COMPLICATION [None]
  - GRAFT DELAMINATION [None]
  - LOOSE BODY IN JOINT [None]
  - OSTEOCHONDROSIS [None]
